FAERS Safety Report 5684116-8 (Version None)
Quarter: 2008Q1

REPORT INFORMATION
  Report Type: 
  Country: None (occurrence: None)
  Receive Date: 20080328
  Receipt Date: 20070725
  Transmission Date: 20080703
  Serious: No
  Sender: FDA-Public Use
  Company Number: US-AMGEN-KDL235711

PATIENT
  Sex: Female

DRUGS (2)
  1. NEULASTA [Suspect]
     Indication: CHEMOTHERAPY
  2. UNSPECIFIED ANTINEOPLASTIC AGENT [Concomitant]

REACTIONS (1)
  - DRUG INEFFECTIVE [None]
